FAERS Safety Report 8677930 (Version 2)
Quarter: 2014Q2

REPORT INFORMATION
  Report Type: Spontaneous
  Country: BR (occurrence: BR)
  Receive Date: 20120723
  Receipt Date: 20140618
  Transmission Date: 20141212
  Serious: Yes (Other)
  Sender: FDA-Public Use
  Company Number: BR-AMGEN-BRASP2012044181

PATIENT
  Age: 43 Year
  Sex: Female
  Weight: 70 kg

DRUGS (2)
  1. ENBREL [Suspect]
     Indication: ANKYLOSING SPONDYLITIS
     Dosage: 25 MG, 2X/WEEK
     Route: 058
     Dates: start: 2010, end: 201202
  2. ENBREL [Suspect]
     Dosage: 25 MG, 2X/WEEK
     Route: 058

REACTIONS (4)
  - Arthropathy [Unknown]
  - Ankylosing spondylitis [Unknown]
  - Osteoarthritis [Unknown]
  - Arthritis [Unknown]
